FAERS Safety Report 20786375 (Version 1)
Quarter: 2022Q2

REPORT INFORMATION
  Report Type: Spontaneous
  Country: US (occurrence: None)
  Receive Date: 20220504
  Receipt Date: 20220504
  Transmission Date: 20220721
  Serious: No
  Sender: FDA-Public Use
  Company Number: US-ROCHE-3037228

PATIENT
  Age: 0 Year
  Sex: Female
  Weight: 4.086 kg

DRUGS (1)
  1. OCREVUS [Suspect]
     Active Substance: OCRELIZUMAB
     Indication: Product used for unknown indication
     Dosage: INITIALLY 300 MG DAY 1 AND DAY 15. ADMINISTER 10 IV ML INFUSION EVERY 2 WEEKS FOR 4 WEEKS; ADMINISTE
     Route: 064
     Dates: start: 202012

REACTIONS (2)
  - Low birth weight baby [Recovered/Resolved]
  - Foetal exposure during pregnancy [Unknown]

NARRATIVE: CASE EVENT DATE: 20211207
